FAERS Safety Report 20916517 (Version 1)
Quarter: 2022Q2

REPORT INFORMATION
  Report Type: Report from Study
  Country: US (occurrence: US)
  Receive Date: 20220605
  Receipt Date: 20220605
  Transmission Date: 20220721
  Serious: Yes (Other)
  Sender: FDA-Public Use
  Company Number: US-BRISTOL-MYERS SQUIBB COMPANY-2022-036292

PATIENT
  Age: 76 Year
  Sex: Female
  Weight: 56.699 kg

DRUGS (4)
  1. POMALYST [Suspect]
     Active Substance: POMALIDOMIDE
     Indication: Plasma cell myeloma
     Dosage: 1 CAPSULE, DAILY
     Route: 048
     Dates: start: 20191218
  2. POMALYST [Suspect]
     Active Substance: POMALIDOMIDE
     Indication: Anaemia
     Route: 065
  3. POMALYST [Suspect]
     Active Substance: POMALIDOMIDE
     Indication: Iron deficiency
  4. POMALYST [Suspect]
     Active Substance: POMALIDOMIDE
     Indication: Illness

REACTIONS (2)
  - Fatigue [Unknown]
  - Bone disorder [Unknown]
